FAERS Safety Report 14705433 (Version 1)
Quarter: 2018Q2

REPORT INFORMATION
  Report Type: Spontaneous
  Country: US (occurrence: US)
  Receive Date: 20180402
  Receipt Date: 20180402
  Transmission Date: 20180711
  Serious: Yes (Life-Threatening, Hospitalization, Other)
  Sender: FDA-Public Use
  Company Number: US-PFIZER INC-2018132142

PATIENT
  Age: 69 Year
  Sex: Female

DRUGS (9)
  1. FENOFIBRATE. [Concomitant]
     Active Substance: FENOFIBRATE
     Dosage: 160 MG, UNK
  2. TYLENOL [Concomitant]
     Active Substance: ACETAMINOPHEN
     Dosage: UNK [ACETAMINOPHEN: 300MG/CODEINE: 60MG]
  3. PRAVASTATIN. [Concomitant]
     Active Substance: PRAVASTATIN
     Dosage: 20 MG, UNK
  4. IBRANCE [Suspect]
     Active Substance: PALBOCICLIB
     Indication: BREAST CANCER FEMALE
     Dosage: 125 MG, CYCLIC (ONE CAPSULE ONCE DAILY WITH FOOD AT SAME TIME OF DAY FOR 21DAYS THEN 7DAY OFF)
     Route: 048
  5. AQUAPHOR [Concomitant]
     Active Substance: PETROLATUM
     Dosage: UNK
  6. FEMARA [Concomitant]
     Active Substance: LETROZOLE
     Dosage: 2.5 MG, UNK
  7. ANASTROZOLE 2CARE4 [Concomitant]
     Dosage: 1 MG, UNK
  8. LISINOPRIL. [Concomitant]
     Active Substance: LISINOPRIL
     Dosage: 20 MG, UNK
  9. AMOXICILLIN AND CLAVULA. POTASSIUM [Concomitant]
     Active Substance: AMOXICILLIN\CLAVULANATE POTASSIUM
     Dosage: UNK

REACTIONS (1)
  - Apparent death [Unknown]
